FAERS Safety Report 8973440 (Version 1)
Quarter: 2012Q4

REPORT INFORMATION
  Report Type: 
  Country: BR (occurrence: BR)
  Receive Date: 20121219
  Receipt Date: 20121219
  Transmission Date: 20130627
  Serious: Yes (Other)
  Sender: FDA-Public Use
  Company Number: BR-JNJFOC-20121206648

PATIENT
  Age: 34 Year
  Sex: Male
  Weight: 110 kg

DRUGS (4)
  1. HALDOL [Suspect]
     Indication: SCHIZOPHRENIA
     Route: 048
     Dates: start: 2000
  2. METFORMIN HYDROCHLORIDE [Concomitant]
     Indication: DIABETES MELLITUS MANAGEMENT
     Route: 065
  3. VITAMINE E [Concomitant]
     Indication: IMMUNE ENHANCEMENT THERAPY
     Route: 065
  4. LITHIUM [Concomitant]
     Route: 065
     Dates: start: 2000

REACTIONS (2)
  - Hepatic cyst [Not Recovered/Not Resolved]
  - Hepatic steatosis [Not Recovered/Not Resolved]
